FAERS Safety Report 23232131 (Version 1)
Quarter: 2023Q4

REPORT INFORMATION
  Report Type: Spontaneous
  Country: US (occurrence: US)
  Receive Date: 20231127
  Receipt Date: 20231127
  Transmission Date: 20240110
  Serious: Yes (Life-Threatening, Hospitalization)
  Sender: FDA-Public Use
  Company Number: US-BAYER-2023A165787

PATIENT
  Age: 29 Year
  Sex: Female

DRUGS (2)
  1. NEXAVAR [Suspect]
     Active Substance: SORAFENIB
     Indication: Desmoid tumour
     Dosage: 200 MG, QD
  2. CELECOXIB [Concomitant]
     Active Substance: CELECOXIB
     Dosage: 200 MG, BID

REACTIONS (2)
  - Capillary leak syndrome [Recovered/Resolved]
  - Off label use [None]
